FAERS Safety Report 4964919-5 (Version None)
Quarter: 2006Q2

REPORT INFORMATION
  Report Type: 
  Country: None (occurrence: None)
  Receive Date: 20060403
  Receipt Date: 20060324
  Transmission Date: 20061013
  Serious: Yes (Life-Threatening)
  Sender: FDA-Public Use
  Company Number: 223439

PATIENT
  Age: 73 Year
  Sex: Female
  Weight: 49 kg

DRUGS (14)
  1. RITUXAN [Suspect]
     Indication: LYMPHOMA
     Dosage: 500 MG, INTRAVENOUS
     Route: 042
     Dates: start: 20050323, end: 20050611
  2. ENDOXAN            (CYCLOPHOSPHAMIDE) [Suspect]
     Indication: LYMPHOMA
     Dosage: 1000 MG, INTRAVENOUS
     Route: 042
     Dates: start: 20050324, end: 20050712
  3. DOXORUBICIN HYDROCHLORIDE [Suspect]
     Indication: LYMPHOMA
     Dosage: 70 MG, INTRAVENOUS
     Route: 042
     Dates: start: 20050324, end: 20050712
  4. ONCOVIN [Suspect]
     Indication: LYMPHOMA
     Dosage: 2 MG, INTRAVENOUS
     Route: 042
     Dates: start: 20050324, end: 20050712
  5. PREDONINE [Suspect]
     Indication: LYMPHOMA
     Dosage: 100 MG, ORAL
     Route: 048
     Dates: start: 20050324, end: 20050712
  6. POLARAMINE [Concomitant]
  7. BRUFEN                   (IBUPROFEN) [Concomitant]
  8. SOLU-MEDROL [Concomitant]
  9. ASCORBIC ACID [Concomitant]
  10. KYTRIL [Concomitant]
  11. LASIX [Concomitant]
  12. NIFEDIPINE [Concomitant]
  13. SULFAMETHOXAZOLE + TRIMETHOPRIM [Concomitant]
  14. SENNOSIDE       (SENNOSIDES) [Concomitant]

REACTIONS (6)
  - CONDITION AGGRAVATED [None]
  - CONSTIPATION [None]
  - HERPES SIMPLEX [None]
  - INFUSION RELATED REACTION [None]
  - NEUTROPHIL COUNT DECREASED [None]
  - STOMATITIS [None]
